FAERS Safety Report 9137605 (Version 1)
Quarter: 2013Q1

REPORT INFORMATION
  Report Type: Other
  Country: US (occurrence: US)
  Receive Date: 20130304
  Receipt Date: 20130304
  Transmission Date: 20140127
  Serious: Yes (Other)
  Sender: FDA-Public Use
  Company Number: US-FRI-1000042931

PATIENT
  Age: 65 Year
  Sex: Male

DRUGS (4)
  1. DILTIAZEM [Suspect]
  2. ASPIRIN [Suspect]
  3. METOPROLOL [Concomitant]
  4. PERCOCET [Concomitant]

REACTIONS (2)
  - Toxicity to various agents [Recovered/Resolved]
  - Cough [Recovered/Resolved]
